FAERS Safety Report 24426227 (Version 2)
Quarter: 2024Q4

REPORT INFORMATION
  Report Type: Spontaneous
  Country: CN (occurrence: CN)
  Receive Date: 20241011
  Receipt Date: 20241030
  Transmission Date: 20250115
  Serious: Yes (Other)
  Sender: RANBAXY
  Company Number: CN-SUN PHARMACEUTICAL INDUSTRIES LTD-2024R1-472826

PATIENT
  Age: 72 Year
  Sex: Male

DRUGS (3)
  1. OXALIPLATIN [Suspect]
     Active Substance: OXALIPLATIN
     Indication: Gastric cancer
     Dosage: UNK (180 MG D1)
     Route: 042
     Dates: start: 202306
  2. INVESTIGATIONAL PRODUCT [Suspect]
     Active Substance: INVESTIGATIONAL PRODUCT
     Indication: Gastric cancer
     Dosage: UNK (60 MGD1?D14 TWICE A DAY, ONCE EVERY 3 WEEKS)
     Route: 048
     Dates: start: 202306
  3. SINTILIMAB [Suspect]
     Active Substance: SINTILIMAB
     Indication: Gastric cancer
     Dosage: UNK (200 MG, EVERY 3 WEEKS)
     Route: 042
     Dates: start: 202307

REACTIONS (2)
  - Myocarditis [Recovered/Resolved]
  - Myasthenia gravis [Recovered/Resolved]
